FAERS Safety Report 11497748 (Version 1)
Quarter: 2015Q3

REPORT INFORMATION
  Report Type: Spontaneous
  Country: US (occurrence: US)
  Receive Date: 20150911
  Receipt Date: 20150911
  Transmission Date: 20151125
  Serious: Yes (Other)
  Sender: FDA-Public Use
  Company Number: US-UNICHEM LABORATORIES LIMITED-UCM201509-000761

PATIENT
  Age: 52 Year
  Sex: Female

DRUGS (2)
  1. HYDROCHOLOTHIAZIDE 25 MG TABLET [Suspect]
     Active Substance: HYDROCHLOROTHIAZIDE
     Indication: BLOOD PRESSURE ABNORMAL
     Route: 048
  2. HYDROCHOLOTHIAZIDE 25 MG TABLET [Suspect]
     Active Substance: HYDROCHLOROTHIAZIDE
     Indication: OEDEMA

REACTIONS (6)
  - Lower limb fracture [Unknown]
  - Dizziness [Unknown]
  - Headache [Unknown]
  - Haemoptysis [Unknown]
  - Drug ineffective [Unknown]
  - Vision blurred [Unknown]

NARRATIVE: CASE EVENT DATE: 201506
